FAERS Safety Report 4576411-0 (Version None)
Quarter: 2005Q1

REPORT INFORMATION
  Report Type: 
  Country: None (occurrence: None)
  Receive Date: 20050119
  Receipt Date: 20040325
  Transmission Date: 20050727
  Serious: Yes (Hospitalization)
  Sender: FDA-Public Use
  Company Number: A03200400947

PATIENT
  Age: 67 Year
  Sex: Male
  Weight: 77.1115 kg

DRUGS (13)
  1. PLAVIX [Suspect]
     Indication: CORONARY ARTERY DISEASE
     Dosage: 75 MG QD - ORAL
     Route: 048
     Dates: start: 20031001, end: 20040128
  2. PLAVIX [Suspect]
     Indication: STENT PLACEMENT
     Dosage: 75 MG QD - ORAL
     Route: 048
     Dates: start: 20031001, end: 20040128
  3. COUMADIN [Suspect]
     Indication: STENT PLACEMENT
     Dosage: ORAL
     Route: 048
     Dates: start: 20031001, end: 20031123
  4. RITONAVIR [Concomitant]
  5. TESTOSTERONE [Concomitant]
  6. IRBESARTAN [Concomitant]
  7. CARVEDILOL [Concomitant]
  8. DILTIAZEM HYDROCHLORIDE [Concomitant]
  9. ACETYLSALICYLIC ACID [Concomitant]
  10. PRAVASTATIN SODIUM [Concomitant]
  11. NELFINAVIR [Concomitant]
  12. ACYCLOVIR [Concomitant]
  13. ZIDOVUDINE [Concomitant]

REACTIONS (5)
  - EPISTAXIS [None]
  - HAEMOGLOBIN DECREASED [None]
  - MYELOID MATURATION ARREST [None]
  - PLATELET COUNT DECREASED [None]
  - WHITE BLOOD CELL COUNT DECREASED [None]
